FAERS Safety Report 5841444-0 (Version None)
Quarter: 2008Q3

REPORT INFORMATION
  Report Type: 
  Country: None (occurrence: None)
  Receive Date: 20080812
  Receipt Date: 20080723
  Transmission Date: 20090109
  Serious: No
  Sender: FDA-Public Use
  Company Number: US-BAYER-200828949NA

PATIENT
  Age: 31 Year
  Sex: Male
  Weight: 109 kg

DRUGS (1)
  1. MAGNEVIST [Suspect]
     Indication: DRUG USE FOR UNKNOWN INDICATION
     Dosage: TOTAL DAILY DOSE: 20 ML
     Route: 042
     Dates: start: 20080717, end: 20080717

REACTIONS (6)
  - DYSPNOEA [None]
  - LACRIMATION INCREASED [None]
  - NAUSEA [None]
  - SNEEZING [None]
  - THROAT IRRITATION [None]
  - URTICARIA [None]
